FAERS Safety Report 14935260 (Version 2)
Quarter: 2018Q3

REPORT INFORMATION
  Report Type: Spontaneous
  Country: FI (occurrence: FI)
  Receive Date: 20180524
  Receipt Date: 20180801
  Transmission Date: 20181010
  Serious: Yes (Hospitalization, Other)
  Sender: FDA-Public Use
  Company Number: PHHY2018FI003646

PATIENT
  Age: 52 Year
  Sex: Male

DRUGS (19)
  1. FURESIS [Concomitant]
     Active Substance: FUROSEMIDE
     Dosage: 40 MG, QD (DOSE INCREASED IF NEEDED DUE TO SWELLING OR WORSENING OF BREATHLESSNESS)
     Route: 048
     Dates: start: 20180307, end: 20180313
  2. MAREVAN FORTE [Concomitant]
     Active Substance: WARFARIN SODIUM
     Indication: ATRIAL FIBRILLATION
     Dosage: (ACCORDING TO A SEPARATE INSTRUCTION)
     Route: 048
     Dates: start: 20161124, end: 20180314
  3. SELOKEN [Concomitant]
     Active Substance: METOPROLOL
     Indication: PRODUCT USED FOR UNKNOWN INDICATION
     Dosage: 1 DF, UNK
     Route: 042
     Dates: start: 20180224, end: 20180227
  4. THYROXIN [Concomitant]
     Active Substance: LEVOTHYROXINE
     Dosage: 50 MG, QD
     Route: 048
     Dates: start: 20180312, end: 20180316
  5. ATACAND [Concomitant]
     Active Substance: CANDESARTAN CILEXETIL
     Indication: CARDIAC FAILURE
     Dosage: 1 DF, BID
     Route: 048
     Dates: start: 20180307, end: 20180314
  6. FURESIS [Concomitant]
     Active Substance: FUROSEMIDE
     Indication: CARDIAC FAILURE
     Dosage: 40 MG, PRN
     Route: 048
     Dates: start: 20171013, end: 20171027
  7. CORDARONE [Concomitant]
     Active Substance: AMIODARONE HYDROCHLORIDE
     Indication: ARRHYTHMIA PROPHYLAXIS
     Dosage: 1 DF, QD
     Route: 048
     Dates: start: 20150424, end: 20180319
  8. ENTRESTO [Suspect]
     Active Substance: SACUBITRIL\VALSARTAN
     Indication: CONGESTIVE CARDIOMYOPATHY
     Dosage: 200 MG, BID
     Route: 048
     Dates: start: 20171029, end: 20180307
  9. ENTRESTO [Suspect]
     Active Substance: SACUBITRIL\VALSARTAN
     Indication: EJECTION FRACTION ABNORMAL
     Dosage: 50 UNK, UNK
     Route: 065
  10. FURESIS [Concomitant]
     Active Substance: FUROSEMIDE
     Dosage: 20 MG, QD
     Route: 048
     Dates: start: 20171027, end: 20180307
  11. OMEPRAZOL ACTAVIS [Concomitant]
     Active Substance: OMEPRAZOLE
     Indication: PRODUCT USED FOR UNKNOWN INDICATION
     Dosage: 1 DF, QD
     Route: 048
     Dates: start: 20140628, end: 20180626
  12. ENTRESTO [Suspect]
     Active Substance: SACUBITRIL\VALSARTAN
     Indication: CARDIAC FAILURE CHRONIC
     Dosage: 100 MG, BID
     Route: 048
     Dates: start: 20171015, end: 20171028
  13. AMORION COMP [Concomitant]
     Indication: PRODUCT USED FOR UNKNOWN INDICATION
     Dosage: 1 DF, BID
     Route: 048
     Dates: start: 20180226, end: 20180305
  14. SPIRIX [Concomitant]
     Active Substance: SPIRONOLACTONE
     Indication: CARDIAC FAILURE
     Dosage: 1 MG, QD
     Route: 048
     Dates: start: 20150422, end: 20180314
  15. THYROXIN [Concomitant]
     Active Substance: LEVOTHYROXINE
     Indication: HYPOTHYROIDISM
     Dosage: 25 MG, QD
     Route: 048
     Dates: start: 20180307, end: 20180311
  16. BISOPROLOL ORION [Concomitant]
     Active Substance: BISOPROLOL
     Indication: CARDIAC FAILURE
     Dosage: 7.5 MG, QD
     Route: 048
     Dates: start: 20161124, end: 20180313
  17. BISOPROLOL ORION [Concomitant]
     Active Substance: BISOPROLOL
     Indication: ARRHYTHMIA PROPHYLAXIS
  18. MAREVAN FORTE [Concomitant]
     Active Substance: WARFARIN SODIUM
     Indication: THROMBOSIS
  19. SALAZOPYRIN [Concomitant]
     Active Substance: SULFASALAZINE
     Indication: COLITIS
     Dosage: 1000 MG, TID
     Route: 048
     Dates: start: 20161124, end: 20180313

REACTIONS (12)
  - Skin necrosis [Unknown]
  - Skin disorder [Unknown]
  - Hyperkalaemia [Unknown]
  - Vasculitis [Unknown]
  - Arthralgia [Unknown]
  - Hyponatraemia [Unknown]
  - Pyoderma gangrenosum [Not Recovered/Not Resolved]
  - Sepsis [Unknown]
  - Rash papular [Unknown]
  - Condition aggravated [Unknown]
  - Calciphylaxis [Unknown]
  - Wound dehiscence [Unknown]

NARRATIVE: CASE EVENT DATE: 2017
